FAERS Safety Report 4754061-0 (Version None)
Quarter: 2005Q3

REPORT INFORMATION
  Report Type: 
  Country: None (occurrence: None)
  Receive Date: 20050826
  Receipt Date: 20050817
  Transmission Date: 20060218
  Serious: Yes (Death, Hospitalization)
  Sender: FDA-Public Use
  Company Number: 163-20785-05050316

PATIENT
  Age: 72 Year
  Sex: Male

DRUGS (5)
  1. THALOMID [Suspect]
     Indication: MULTIPLE MYELOMA
     Dosage: 200 MG, DAILY, ORAL
     Route: 048
     Dates: start: 20050324, end: 20050422
  2. DETROL LA [Concomitant]
  3. MS CONTIN [Concomitant]
  4. LABETALOL HCL [Concomitant]
  5. HYDROCODONE (HYDROCODONE) [Concomitant]

REACTIONS (4)
  - CARDIO-RESPIRATORY ARREST [None]
  - DISEASE PROGRESSION [None]
  - PNEUMONIA VIRAL [None]
  - RESPIRATORY FAILURE [None]
